FAERS Safety Report 15414900 (Version 1)
Quarter: 2018Q3

REPORT INFORMATION
  Report Type: Spontaneous
  Country: US (occurrence: US)
  Receive Date: 20180921
  Receipt Date: 20180921
  Transmission Date: 20181010
  Serious: Yes (Hospitalization)
  Sender: FDA-Public Use
  Company Number: US-SA-2018SA260196

PATIENT
  Age: 28 Year
  Sex: Male
  Weight: 80 kg

DRUGS (6)
  1. LIDOCAINE. [Suspect]
     Active Substance: LIDOCAINE
     Indication: LOCAL ANAESTHESIA
     Dosage: 4% UNK
     Route: 061
  2. CETACAINE [BENZOCAINE;BUTYL AMINOBENZOATE;TETRACAINE HYDROCHLORIDE] [Concomitant]
     Indication: LOCAL ANAESTHESIA
     Dosage: ONE TO THREE SECOND SPRAY
     Route: 061
  3. MEPERIDINE [PETHIDINE] [Concomitant]
  4. CEPHALOTHIN [CEFALOTIN] [Concomitant]
  5. BENZOCAINE. [Suspect]
     Active Substance: BENZOCAINE
     Indication: LOCAL ANAESTHESIA
     Dosage: UNK OINTMENT
     Route: 061
  6. BENZOCAINE. [Suspect]
     Active Substance: BENZOCAINE
     Dosage: UNK OINTMENT

REACTIONS (2)
  - Methaemoglobinaemia [Recovered/Resolved]
  - Cyanosis [Recovered/Resolved]
